FAERS Safety Report 5951662-9 (Version None)
Quarter: 2008Q4

REPORT INFORMATION
  Report Type: 
  Country: None (occurrence: None)
  Receive Date: 20081110
  Receipt Date: 20081104
  Transmission Date: 20090506
  Serious: Yes (Life-Threatening)
  Sender: FDA-Public Use
  Company Number: 2008-04171

PATIENT
  Age: 53 Year
  Sex: Female
  Weight: 104 kg

DRUGS (18)
  1. VELCADE [Suspect]
     Indication: MULTIPLE MYELOMA
     Dosage: 2 MG, UNK, INTRAVENOUS
     Route: 042
     Dates: start: 20081021
  2. THALIDOMIDE [Suspect]
     Indication: MULTIPLE MYELOMA
     Dosage: 100 MG, ORAL
     Route: 048
     Dates: start: 20081028, end: 20081031
  3. DEXAMETHASONE TAB [Suspect]
     Indication: MULTIPLE MYELOMA
     Dosage: 40 MG,, ORAL
     Route: 048
     Dates: start: 20081021
  4. LOVENOX (HERAPIN-FRACTION, SODIUM SALT) [Concomitant]
  5. VALACYCLOVIR HCL [Concomitant]
  6. MORPHINE [Concomitant]
  7. ACETAMINOPHEN [Concomitant]
  8. LASIX [Concomitant]
  9. BRINCANYL (TERBUTALINE SULFATE) [Concomitant]
  10. ATROVENT [Concomitant]
  11. MORPHINE SULFATE [Concomitant]
  12. MORPHINE SULFATE [Concomitant]
  13. MYOLASTAN (TETRAZEPAM) [Concomitant]
  14. TRAMADOL HCL [Concomitant]
  15. BETASERC (BETAHISTINE HYDROCHLORIDE) [Concomitant]
  16. ESOMEPRAZOLE MAGNESIUM [Concomitant]
  17. ZOLOFT [Concomitant]
  18. ATARAX [Concomitant]

REACTIONS (2)
  - DEEP VEIN THROMBOSIS [None]
  - PULMONARY EMBOLISM [None]
